FAERS Safety Report 4356012-X (Version None)
Quarter: 2004Q2

REPORT INFORMATION
  Report Type: 
  Country: None (occurrence: None)
  Receive Date: 20040505
  Receipt Date: 20040423
  Transmission Date: 20050107
  Serious: Yes (Hospitalization)
  Sender: FDA-Public Use
  Company Number: WAES 0211USA01496

PATIENT
  Age: 73 Year
  Sex: Male
  Weight: 71.2147 kg

DRUGS (10)
  1. VIOXX [Suspect]
     Indication: NEOPLASM PROPHYLAXIS
     Dosage: 50 MG/DAILY/PO
     Route: 048
     Dates: start: 20000419, end: 20000816
  2. VIOXX [Suspect]
     Indication: NEOPLASM PROPHYLAXIS
     Dosage: 50 MG/DAILY/PO
     Route: 048
     Dates: start: 20000817, end: 20021009
  3. ACETAMINOPHEN [Suspect]
     Indication: PROPHYLAXIS
     Dosage: PRN/PO
     Route: 048
     Dates: start: 20000308, end: 20021009
  4. MULTIVITAMIN [Concomitant]
  5. DI-GEL [Concomitant]
  6. REMINYL [Concomitant]
  7. TYLENOL [Concomitant]
  8. VASOTEC [Concomitant]
  9. ZANTAC [Concomitant]
  10. MALATHION [Concomitant]

REACTIONS (6)
  - CARDIAC FAILURE CONGESTIVE [None]
  - CARDIOMYOPATHY [None]
  - DEMENTIA ALZHEIMER'S TYPE [None]
  - ELECTROCARDIOGRAM CHANGE [None]
  - RENAL FAILURE [None]
  - VENTRICULAR DYSFUNCTION [None]
